FAERS Safety Report 8477096 (Version 9)
Quarter: 2013Q2

REPORT INFORMATION
  Report Type: Report from Study
  Country: US (occurrence: US)
  Receive Date: 20120326
  Receipt Date: 20130517
  Transmission Date: 20140414
  Serious: Yes (Other)
  Sender: FDA-Public Use
  Company Number: US-PFIZER INC-2011072569

PATIENT
  Age: 43 Year
  Sex: Female
  Weight: 84.4 kg

DRUGS (19)
  1. PRISTIQ [Suspect]
     Indication: DEPRESSION
     Dosage: 50 MG, 2X/DAY
     Route: 048
  2. ATACAND [Concomitant]
     Indication: HYPERTENSION
     Dosage: 16 MG, DAILY
     Dates: start: 20100401
  3. COREG [Concomitant]
     Indication: CARDIAC DISORDER
     Dosage: 12.5 MG, 2X/DAY
     Dates: start: 20110630
  4. WARFARIN SODIUM [Concomitant]
     Dosage: 5 MG DAILY
     Dates: start: 20120615
  5. OMEPRAZOLE [Concomitant]
     Dosage: 20 MG DAILY
     Dates: start: 20120615
  6. LASIX [Concomitant]
     Dosage: 20 MG, 2X/DAY
     Dates: start: 20120615
  7. KLOR-CON [Concomitant]
     Dosage: 20 MEQ, DAILY
     Dates: start: 20120615
  8. IMDUR [Concomitant]
     Dosage: 30 MG, EVERY MORNING
     Dates: start: 20120615
  9. NORCO [Concomitant]
     Indication: PAIN
     Dosage: 7.5/325MG 1-2 TABLETS EVERY 4-6 HOURS AS NEEDED
     Dates: start: 20120605
  10. FENOFIBRATE [Concomitant]
     Dosage: 54 MG DAILY
     Dates: start: 20120605
  11. XANAX [Concomitant]
     Dosage: 1 MG, 3X/DAY
     Dates: start: 20120517
  12. TOPAMAX [Concomitant]
     Dosage: 25 MG 2 TABLET, 2X/DAY
     Dates: start: 20120203, end: 2012
  13. TOPAMAX [Concomitant]
     Dosage: 50 MG, 2X/DAY
     Dates: start: 20120321
  14. TEMAZEPAM [Concomitant]
     Dosage: 30 MG, AT BEDTIME
     Dates: start: 20120321
  15. ASPIRIN [Concomitant]
     Dosage: 325 MG 2 TABLET, 1X/DAY
     Dates: start: 20120321
  16. PLAVIX [Concomitant]
     Dosage: 75 MG DAILY
     Dates: start: 20120207
  17. NITROLINGUAL [Concomitant]
     Dosage: SPRAY 1 DOSE UNDER THE TONGUE AT THE ONSET OF CHEST PAIN, REPEAT EVERY 5 MINUTES, MAXIMUM 3 DOSES
     Dates: start: 20120203
  18. LISINOPRIL [Concomitant]
     Dosage: 5 MG 0.5 TABLET, DAILY
     Dates: start: 20120203
  19. INFLUENZA VACCINE [Concomitant]
     Dosage: UNK
     Dates: start: 201111

REACTIONS (11)
  - Amnesia [Unknown]
  - Memory impairment [Unknown]
  - Arterial occlusive disease [Unknown]
  - Myocardial infarction [Not Recovered/Not Resolved]
  - Cardiac failure [Not Recovered/Not Resolved]
  - Depression [Unknown]
  - Suicidal ideation [Unknown]
  - Dyspnoea [Unknown]
  - Malaise [Unknown]
  - Vomiting [Unknown]
  - Pain in extremity [Unknown]
